FAERS Safety Report 18082631 (Version 2)
Quarter: 2024Q3

REPORT INFORMATION
  Report Type: Spontaneous
  Country: GB (occurrence: GB)
  Receive Date: 20200729
  Receipt Date: 20240805
  Transmission Date: 20241016
  Serious: Yes (Death, Hospitalization, Other)
  Sender: SANOFI AVENTIS
  Company Number: None

PATIENT
  Age: 71 Year
  Sex: Male

DRUGS (12)
  1. DUPILUMAB [Suspect]
     Active Substance: DUPILUMAB
     Indication: Eczema
     Dosage: 300 MG, QOW
     Route: 058
     Dates: start: 201912, end: 20200518
  2. DIHYDROCODEINE [Concomitant]
     Active Substance: DIHYDROCODEINE
  3. AMITRIPTYLINE [Concomitant]
     Active Substance: AMITRIPTYLINE
  4. BISOPROLOL [Concomitant]
     Active Substance: BISOPROLOL\BISOPROLOL FUMARATE
  5. CLOPIDOGREL [Concomitant]
     Active Substance: CLOPIDOGREL BISULFATE
  6. SIMVASTATIN [Concomitant]
     Active Substance: SIMVASTATIN
  7. TRAMADOL [Concomitant]
     Active Substance: TRAMADOL\TRAMADOL HYDROCHLORIDE
  8. ISOSORBIDE MONONITRATE [Concomitant]
     Active Substance: ISOSORBIDE MONONITRATE
  9. ASPIRIN [Concomitant]
     Active Substance: ASPIRIN
  10. AMLODIPINE [Concomitant]
     Active Substance: AMLODIPINE BESYLATE
  11. LOSARTAN [Concomitant]
     Active Substance: LOSARTAN
  12. MEBEVERINE [Concomitant]
     Active Substance: MEBEVERINE

REACTIONS (18)
  - Cerebrovascular accident [Fatal]
  - Sepsis [Fatal]
  - Loss of consciousness [Fatal]
  - Status epilepticus [Fatal]
  - Urinary tract infection [Unknown]
  - Fall [Unknown]
  - Thalamic infarction [Unknown]
  - Cerebral infarction [Unknown]
  - Neurological symptom [Unknown]
  - Acute kidney injury [Unknown]
  - Facial paralysis [Unknown]
  - Behaviour disorder [Unknown]
  - Confusional state [Unknown]
  - Pneumonia [Unknown]
  - Constipation [Unknown]
  - Hypernatraemia [Unknown]
  - Past-pointing [Unknown]
  - Nystagmus [Unknown]

NARRATIVE: CASE EVENT DATE: 20200101
